FAERS Safety Report 21579760 (Version 1)
Quarter: 2022Q4

REPORT INFORMATION
  Report Type: Spontaneous
  Country: US (occurrence: None)
  Receive Date: 20221109
  Receipt Date: 20221109
  Transmission Date: 20230113
  Serious: No
  Sender: FDA-Public Use
  Company Number: None

PATIENT
  Sex: Male

DRUGS (1)
  1. CAPECITABINE [Suspect]
     Active Substance: CAPECITABINE
     Dosage: 1500 MG BID ORAL
     Route: 048

REACTIONS (7)
  - Blister [None]
  - Dry skin [None]
  - Skin exfoliation [None]
  - Haematochezia [None]
  - Mucous stools [None]
  - Pollakiuria [None]
  - Dysuria [None]
